FAERS Safety Report 4753362-X (Version None)
Quarter: 2005Q3

REPORT INFORMATION
  Report Type: 
  Country: None (occurrence: None)
  Receive Date: 20050823
  Receipt Date: 20050805
  Transmission Date: 20060218
  Serious: Yes (Other)
  Sender: FDA-Public Use
  Company Number: US_0504115161

PATIENT
  Sex: Male

DRUGS (2)
  1. HUMALOG [Suspect]
     Indication: DIABETES MELLITUS INSULIN-DEPENDENT
     Dates: start: 19940101, end: 19950101
  2. HUMALOG MIX 75/25 [Suspect]
     Indication: DIABETES MELLITUS INSULIN-DEPENDENT

REACTIONS (5)
  - ANXIETY [None]
  - BLINDNESS [None]
  - PHARMACEUTICAL PRODUCT COMPLAINT [None]
  - RETINAL TEAR [None]
  - VISUAL FIELD DEFECT [None]
